FAERS Safety Report 17444810 (Version 1)
Quarter: 2020Q1

REPORT INFORMATION
  Report Type: Spontaneous
  Country: FR (occurrence: FR)
  Receive Date: 20200221
  Receipt Date: 20200221
  Transmission Date: 20200409
  Serious: Yes (Congenital Anomaly)
  Sender: FDA-Public Use
  Company Number: FR-TEVA-2020-FR-1189138

PATIENT
  Age: 4 Month
  Sex: Female

DRUGS (1)
  1. LAMOTRIGINE. [Suspect]
     Active Substance: LAMOTRIGINE
     Indication: DEPRESSION
     Route: 064
     Dates: start: 20181108, end: 20190719

REACTIONS (1)
  - Plagiocephaly [Recovering/Resolving]

NARRATIVE: CASE EVENT DATE: 20191205
